FAERS Safety Report 22264347 (Version 1)
Quarter: 2023Q2

REPORT INFORMATION
  Report Type: Spontaneous
  Country: US (occurrence: None)
  Receive Date: 20230427
  Receipt Date: 20230427
  Transmission Date: 20230722
  Serious: No
  Sender: FDA-Public Use
  Company Number: None

PATIENT
  Age: 55 Year
  Sex: Female

DRUGS (3)
  1. LATANOPROST [Suspect]
     Active Substance: LATANOPROST
     Indication: Intraocular pressure increased
     Dosage: OTHER QUANTITY : 1 DROP(S);?FREQUENCY : AT BEDTIME;?
     Route: 061
     Dates: start: 20230111, end: 20230222
  2. HYDROCHLOROTHIAZIDE [Concomitant]
     Active Substance: HYDROCHLOROTHIAZIDE
  3. VALSARTAN [Concomitant]
     Active Substance: VALSARTAN

REACTIONS (4)
  - Product substitution issue [None]
  - Instillation site irritation [None]
  - Eye irritation [None]
  - Ocular discomfort [None]

NARRATIVE: CASE EVENT DATE: 20230118
